FAERS Safety Report 4505235-5 (Version None)
Quarter: 2004Q4

REPORT INFORMATION
  Report Type: 
  Country: None (occurrence: None)
  Receive Date: 20041118
  Receipt Date: 20041118
  Transmission Date: 20050328
  Serious: Yes (Death)
  Sender: FDA-Public Use
  Company Number: None

PATIENT
  Age: 84 Year
  Sex: Male
  Weight: 84 kg

DRUGS (5)
  1. AZTREONAM (NOTE, GIVEN ORIGINALLY AT WASHINGTON HOME) [Suspect]
     Indication: WOUND INFECTION
  2. CIPRO [Concomitant]
  3. LINEZOLID [Concomitant]
  4. FLUCONAZOLE [Concomitant]
  5. VANCOMYCIN [Concomitant]

REACTIONS (7)
  - ANURIA [None]
  - HYPOTENSION [None]
  - HYPOTHERMIA [None]
  - MULTI-ORGAN FAILURE [None]
  - PNEUMONIA [None]
  - RENAL FAILURE [None]
  - TOXIC EPIDERMAL NECROLYSIS [None]
